FAERS Safety Report 19623886 (Version 5)
Quarter: 2021Q4

REPORT INFORMATION
  Report Type: Report from Study
  Country: US (occurrence: US)
  Receive Date: 20210729
  Receipt Date: 20211009
  Transmission Date: 20220303
  Serious: Yes (Hospitalization)
  Sender: FDA-Public Use
  Company Number: NVSC2021US082057

PATIENT
  Sex: Female

DRUGS (2)
  1. ENTRESTO [Suspect]
     Active Substance: SACUBITRIL\VALSARTAN
     Indication: Cardiac failure chronic
     Dosage: UNK
     Route: 065
  2. XARELTO [Concomitant]
     Active Substance: RIVAROXABAN
     Indication: Product used for unknown indication
     Dosage: UNK (SINCE BEFORE ENTRESTO)
     Route: 065

REACTIONS (8)
  - Thrombosis [Unknown]
  - Haemorrhage [Unknown]
  - Colitis ischaemic [Unknown]
  - Eye colour change [Unknown]
  - Contusion [Unknown]
  - Dyspnoea [Unknown]
  - Chromaturia [Unknown]
  - Sleep disorder [Unknown]
